FAERS Safety Report 23337781 (Version 2)
Quarter: 2024Q2

REPORT INFORMATION
  Report Type: Spontaneous
  Country: PR (occurrence: PR)
  Receive Date: 20231226
  Receipt Date: 20240429
  Transmission Date: 20240716
  Serious: Yes (Hospitalization, Other)
  Sender: FDA-Public Use
  Company Number: PR-PFIZER INC-202300445171

PATIENT
  Age: 78 Year
  Sex: Female

DRUGS (7)
  1. XELJANZ [Suspect]
     Active Substance: TOFACITINIB CITRATE
     Dosage: 5 MG, 2X/DAY
     Route: 048
     Dates: start: 20220328
  2. XELJANZ [Suspect]
     Active Substance: TOFACITINIB CITRATE
     Dosage: 5 MG, 2X/DAY
     Route: 048
     Dates: start: 20220329, end: 2024
  3. XELJANZ [Suspect]
     Active Substance: TOFACITINIB CITRATE
     Dosage: 5 MG, 2X/DAY
     Route: 048
     Dates: start: 20240422
  4. PREDNISONE [Concomitant]
     Active Substance: PREDNISONE
     Dosage: UNK
  5. ALPRAZOLAM [Concomitant]
     Active Substance: ALPRAZOLAM
     Dosage: UNK
  6. ZOLOFT [Concomitant]
     Active Substance: SERTRALINE HYDROCHLORIDE
     Dosage: UNK
  7. PEPCID [Concomitant]
     Active Substance: FAMOTIDINE
     Dosage: UNK

REACTIONS (13)
  - Colitis [Unknown]
  - Bone graft [Unknown]
  - Nerve compression [Not Recovered/Not Resolved]
  - Dyskinesia [Not Recovered/Not Resolved]
  - Abdominal discomfort [Not Recovered/Not Resolved]
  - Diarrhoea [Not Recovered/Not Resolved]
  - Dehydration [Not Recovered/Not Resolved]
  - Asthenia [Not Recovered/Not Resolved]
  - Bone pain [Unknown]
  - Arthralgia [Unknown]
  - Back pain [Unknown]
  - Facial pain [Unknown]
  - Back disorder [Unknown]

NARRATIVE: CASE EVENT DATE: 20230101
